FAERS Safety Report 8322978-6 (Version None)
Quarter: 2012Q2

REPORT INFORMATION
  Report Type: 
  Country: None (occurrence: None)
  Receive Date: 20120430
  Receipt Date: 20120425
  Transmission Date: 20120825
  Serious: Yes (Hospitalization)
  Sender: FDA-Public Use
  Company Number: AT-PFIZER INC-2012103214

PATIENT
  Age: 30 Month
  Sex: Female

DRUGS (1)
  1. DOSTINEX [Suspect]
     Dosage: 0.75 MG, SINGLE
     Route: 048
     Dates: start: 20120113, end: 20120113

REACTIONS (8)
  - POISONING [None]
  - ATAXIA [None]
  - ACCIDENTAL DRUG INTAKE BY CHILD [None]
  - VOMITING [None]
  - DYSLALIA [None]
  - NAUSEA [None]
  - DIZZINESS [None]
  - HALLUCINATION [None]
